FAERS Safety Report 8179465-8 (Version None)
Quarter: 2012Q1

REPORT INFORMATION
  Report Type: 
  Country: None (occurrence: None)
  Receive Date: 20120302
  Receipt Date: 20120223
  Transmission Date: 20120608
  Serious: Yes (Hospitalization)
  Sender: FDA-Public Use
  Company Number: DE-JNJFOC-20110810137

PATIENT
  Sex: Male
  Weight: 75.8 kg

DRUGS (24)
  1. VALPROATE SODIUM [Concomitant]
     Route: 048
     Dates: start: 20110729, end: 20110807
  2. VALPROATE SODIUM [Concomitant]
     Route: 048
     Dates: start: 20110728, end: 20110728
  3. VALPROATE SODIUM [Concomitant]
     Route: 048
     Dates: start: 20110617, end: 20110711
  4. VALPROATE SODIUM [Concomitant]
     Route: 048
     Dates: start: 20110712, end: 20110712
  5. XEPLION [Suspect]
     Route: 030
     Dates: start: 20110621, end: 20110628
  6. RISPERDAL [Suspect]
     Indication: PRODUCT USED FOR UNKNOWN INDICATION
     Route: 048
     Dates: start: 20110708, end: 20110711
  7. VALPROATE SODIUM [Concomitant]
     Route: 048
     Dates: start: 20110617, end: 20110711
  8. VALPROATE SODIUM [Concomitant]
     Route: 048
     Dates: start: 20110729, end: 20110807
  9. XEPLION [Suspect]
     Route: 030
     Dates: start: 20110726, end: 20110818
  10. VALPROATE SODIUM [Concomitant]
     Route: 048
     Dates: start: 20110728, end: 20110728
  11. VALPROATE SODIUM [Concomitant]
     Indication: RESTLESSNESS
     Route: 048
     Dates: start: 20110808
  12. XEPLION [Suspect]
     Indication: SCHIZOPHRENIA, PARANOID TYPE
     Route: 030
     Dates: start: 20110621, end: 20110621
  13. RISPERDAL [Suspect]
     Route: 048
     Dates: start: 20110621, end: 20110621
  14. RISPERDAL [Suspect]
     Route: 048
     Dates: start: 20110622, end: 20110707
  15. VALPROATE SODIUM [Concomitant]
     Route: 048
     Dates: start: 20110713, end: 20110727
  16. VALPROATE SODIUM [Concomitant]
     Route: 048
     Dates: start: 20110712, end: 20110712
  17. VALPROATE SODIUM [Concomitant]
     Indication: THERAPEUTIC RESPONSE DECREASED
     Route: 048
     Dates: start: 20110808
  18. VALPROATE SODIUM [Concomitant]
     Route: 048
     Dates: start: 20110728, end: 20110728
  19. VALPROATE SODIUM [Concomitant]
     Route: 048
     Dates: start: 20110713, end: 20110727
  20. VALPROATE SODIUM [Concomitant]
     Route: 048
     Dates: start: 20110712, end: 20110712
  21. VALPROATE SODIUM [Concomitant]
     Route: 048
     Dates: start: 20110713, end: 20110727
  22. VALPROATE SODIUM [Concomitant]
     Indication: COMPULSIONS
     Route: 048
     Dates: start: 20110617, end: 20110711
  23. VALPROATE SODIUM [Concomitant]
     Route: 048
     Dates: start: 20110808
  24. VALPROATE SODIUM [Concomitant]
     Route: 048
     Dates: start: 20110729, end: 20110807

REACTIONS (3)
  - DRUG LEVEL DECREASED [None]
  - DRUG INEFFECTIVE [None]
  - HOSPITALISATION [None]
